FAERS Safety Report 8881884 (Version 1)
Quarter: 2012Q4

REPORT INFORMATION
  Report Type: 
  Country: US (occurrence: US)
  Receive Date: 20121101
  Receipt Date: 20121101
  Transmission Date: 20130627
  Serious: No
  Sender: FDA-Public Use
  Company Number: US-PFIZER INC-2012269283

PATIENT
  Age: 52 Year
  Sex: Female
  Weight: 130 kg

DRUGS (2)
  1. GABAPENTIN [Suspect]
     Indication: NEUROPATHY
     Dosage: 75 mg, 2x/day
     Dates: start: 20120701, end: 20120815
  2. METOPROLOL [Concomitant]
     Indication: BLOOD PRESSURE HIGH
     Dosage: 50 mg, 2x/day
     Dates: start: 20111202

REACTIONS (1)
  - Drug ineffective [Unknown]
